FAERS Safety Report 14803210 (Version 1)
Quarter: 2018Q2

REPORT INFORMATION
  Report Type: Spontaneous
  Country: US (occurrence: US)
  Receive Date: 20180425
  Receipt Date: 20180425
  Transmission Date: 20180711
  Serious: Yes (Hospitalization, Other)
  Sender: FDA-Public Use
  Company Number: US-AMGEN-USASP2018053839

PATIENT
  Age: 64 Year
  Sex: Female

DRUGS (6)
  1. NEULASTA [Suspect]
     Active Substance: PEGFILGRASTIM
     Dosage: 6 MG, AFTER CHEMO (WITH EACH CHEMOTHERAPY CYCLE)
     Route: 065
     Dates: start: 20180411
  2. CISPLATIN. [Suspect]
     Active Substance: CISPLATIN
     Dosage: UNK UNK, CYCLICAL (CYCLE 2 OVER 3 DAYS)
     Route: 065
     Dates: start: 201804
  3. NEULASTA [Suspect]
     Active Substance: PEGFILGRASTIM
     Indication: NEUTROPENIA
     Dosage: 6 MG, AFTER CHEMO (WITH EACH CHEMOTHERAPY CYCLE)
     Route: 065
     Dates: start: 201803
  4. ETOPOSIDE. [Suspect]
     Active Substance: ETOPOSIDE
     Indication: LUNG NEOPLASM MALIGNANT
     Dosage: UNK UNK, CYCLICAL (CYCLE 1 OVER 8 DAYS)
     Route: 065
     Dates: start: 201803
  5. ETOPOSIDE. [Suspect]
     Active Substance: ETOPOSIDE
     Dosage: UNK, CYCLICAL, (CYCLE 2 OVER 3 DAYS)
     Route: 065
     Dates: start: 201804
  6. CISPLATIN. [Suspect]
     Active Substance: CISPLATIN
     Indication: LUNG NEOPLASM MALIGNANT
     Dosage: UNK UNK, CYCLICAL (CYCLE 1 OVER 8 DAYS)
     Route: 065
     Dates: start: 201803

REACTIONS (5)
  - Hypoacusis [Not Recovered/Not Resolved]
  - Thrombosis [Unknown]
  - Pneumonia [Unknown]
  - Febrile neutropenia [Unknown]
  - Asthenia [Unknown]

NARRATIVE: CASE EVENT DATE: 2018
